FAERS Safety Report 19295201 (Version 1)
Quarter: 2021Q2

REPORT INFORMATION
  Report Type: Other
  Country: CA (occurrence: CA)
  Receive Date: 20210524
  Receipt Date: 20210524
  Transmission Date: 20210717
  Serious: Yes (Other)
  Sender: FDA-Public Use
  Company Number: CA-ROCHE-2832960

PATIENT
  Sex: Male

DRUGS (21)
  1. ELIQUIS [Concomitant]
     Active Substance: APIXABAN
  2. PANTOPRAZOLE [Concomitant]
     Active Substance: PANTOPRAZOLE
  3. HYDROMORPHONE [Concomitant]
     Active Substance: HYDROMORPHONE
  4. RANITIDINE. [Concomitant]
     Active Substance: RANITIDINE
  5. SOLU?MEDROL [Concomitant]
     Active Substance: METHYLPREDNISOLONE SODIUM SUCCINATE
     Indication: PREMEDICATION
     Route: 042
     Dates: start: 20190829
  6. IRON [Concomitant]
     Active Substance: IRON
     Indication: FORMICATION
  7. AMLODIPINE [Concomitant]
     Active Substance: AMLODIPINE BESYLATE
  8. AMOXICILLIN. [Concomitant]
     Active Substance: AMOXICILLIN
  9. CALCIUM [Concomitant]
     Active Substance: CALCIUM
  10. RAMIPRIL. [Concomitant]
     Active Substance: RAMIPRIL
  11. ATROVENT [Concomitant]
     Active Substance: IPRATROPIUM BROMIDE
  12. BENADRYL [Concomitant]
     Active Substance: DIPHENHYDRAMINE HYDROCHLORIDE
     Indication: PREMEDICATION
     Route: 048
     Dates: start: 20190829
  13. GABAPENTIN. [Concomitant]
     Active Substance: GABAPENTIN
  14. SULFATRIM [Concomitant]
     Active Substance: SULFAMETHOXAZOLE\TRIMETHOPRIM
  15. TYLENOL WITH CODEINE [Concomitant]
     Active Substance: ACETAMINOPHEN\CODEINE PHOSPHATE
  16. RITUXAN [Suspect]
     Active Substance: RITUXIMAB
     Indication: INTERSTITIAL LUNG DISEASE
     Route: 041
     Dates: start: 20190829
  17. ALENDRONATE [Concomitant]
     Active Substance: ALENDRONATE SODIUM
  18. PREDNISONE. [Concomitant]
     Active Substance: PREDNISONE
  19. TYLENOL [Concomitant]
     Active Substance: ACETAMINOPHEN
     Indication: PREMEDICATION
     Route: 048
     Dates: start: 20190829
  20. HYDROCHLOROTHIAZIDE. [Concomitant]
     Active Substance: HYDROCHLOROTHIAZIDE
  21. VITAMIN D [ERGOCALCIFEROL] [Concomitant]
     Active Substance: ERGOCALCIFEROL

REACTIONS (1)
  - Spinal disorder [Unknown]

NARRATIVE: CASE EVENT DATE: 2021
